FAERS Safety Report 4451111-6 (Version None)
Quarter: 2004Q3

REPORT INFORMATION
  Report Type: 
  Country: None (occurrence: None)
  Receive Date: 20040812
  Receipt Date: 20040427
  Transmission Date: 20050211
  Serious: No
  Sender: FDA-Public Use
  Company Number: USA040465971

PATIENT
  Age: 53 Year
  Sex: Male

DRUGS (19)
  1. CIALIS [Suspect]
     Indication: ERECTILE DYSFUNCTION
     Dosage: 20 MG
     Dates: start: 20040401
  2. BETASERON [Concomitant]
  3. ASPIRIN [Concomitant]
  4. BISACODYL [Concomitant]
  5. CAPSAICIN [Concomitant]
  6. CITALOPRAM [Concomitant]
  7. CLOPIDOGREL [Concomitant]
  8. DIPHENHYDRAMINE HCL [Concomitant]
  9. DOXYCYCLINE [Concomitant]
  10. ETODOLAC [Concomitant]
  11. HYDROCHLOROTHIAZIDE [Concomitant]
  12. ISOSORBIDE DINITRATE [Concomitant]
  13. MECLIZINE [Concomitant]
  14. PRILOSEC [Concomitant]
  15. OXYMETAZOLINE [Concomitant]
  16. RABEPRAZOLE SODIUM [Concomitant]
  17. SIMVASTATIN [Concomitant]
  18. AMLODIPINE [Concomitant]
  19. TAMSULOSIN HYDROCHLORIDE [Concomitant]

REACTIONS (1)
  - THERAPEUTIC RESPONSE DECREASED [None]
